FAERS Safety Report 7269302-8 (Version None)
Quarter: 2011Q1

REPORT INFORMATION
  Report Type: 
  Country: None (occurrence: None)
  Receive Date: 20110124
  Receipt Date: 20110117
  Transmission Date: 20110831
  Serious: Yes (Hospitalization)
  Sender: FDA-Public Use
  Company Number: 1000004272

PATIENT
  Age: 50 Year
  Sex: Female

DRUGS (6)
  1. VALPRESSOR (VALSARTAN) (CAPSULES) [Suspect]
     Indication: HYPERTENSION
     Dosage: 160 MG (160 MG, 1 IN 1 D), ORAL
     Route: 048
     Dates: start: 20081129, end: 20081229
  2. ALLOPURINOL [Suspect]
     Indication: RENAL FAILURE CHRONIC
     Dosage: 300 MG (300 MG, 1 IN 1 D), ORAL
     Route: 048
     Dates: start: 20081129, end: 20081229
  3. CARDURA [Suspect]
     Indication: HYPERTENSION
     Dosage: 4 MG (4 MG, 1 IN 1 D), ORAL
     Route: 048
     Dates: start: 20081129, end: 20081229
  4. NEBIVOLOL HCL [Suspect]
     Indication: HYPERTENSION
     Dosage: 5 MG (5 MG, 1 IN 1 D), ORAL
     Route: 048
     Dates: start: 20081129, end: 20081229
  5. ARANESP [Suspect]
     Indication: NEPHROGENIC ANAEMIA
     Dosage: 8.5714 MCG (60 MCG, 1 IN 1 WK), SUBCUTANEOUS
     Route: 058
     Dates: start: 20081129, end: 20081229
  6. LASIX [Suspect]
     Dosage: 25 MG (25 MG, 1 IN 1 D), ORAL
     Route: 048
     Dates: start: 20081129, end: 20081229

REACTIONS (3)
  - AZOTAEMIA [None]
  - DRUG ERUPTION [None]
  - BLOOD CREATININE INCREASED [None]
